FAERS Safety Report 4851280-X (Version None)
Quarter: 2005Q4

REPORT INFORMATION
  Report Type: 
  Country: None (occurrence: None)
  Receive Date: 20051209
  Receipt Date: 20051130
  Transmission Date: 20060501
  Serious: Yes (Hospitalization)
  Sender: FDA-Public Use
  Company Number: S05-USA-05097-01

PATIENT
  Sex: Female

DRUGS (1)
  1. NAMENDA [Suspect]
     Dosage: 5 MG QD PO
     Route: 048
     Dates: start: 20050331

REACTIONS (9)
  - AGGRESSION [None]
  - ANOREXIA [None]
  - APHASIA [None]
  - DIFFICULTY IN WALKING [None]
  - GENERAL PHYSICAL HEALTH DETERIORATION [None]
  - PERSONALITY CHANGE [None]
  - SOMNOLENCE [None]
  - STARING [None]
  - UNEVALUABLE EVENT [None]
